FAERS Safety Report 10484069 (Version 1)
Quarter: 2014Q3

REPORT INFORMATION
  Report Type: Spontaneous
  Country: US (occurrence: None)
  Receive Date: 20140926
  Receipt Date: 20140926
  Transmission Date: 20150326
  Serious: Yes (Hospitalization)
  Sender: FDA-Public Use
  Company Number: BR14-352-AE

PATIENT
  Age: 18 Month
  Sex: Female

DRUGS (1)
  1. BUPRENORPHINE /NALOXONE SUBLINGUAL TABLETS [Suspect]
     Active Substance: BUPRENORPHINE\NALOXONE

REACTIONS (1)
  - Accidental exposure to product by child [None]

NARRATIVE: CASE EVENT DATE: 20140827
